FAERS Safety Report 4300330-8 (Version None)
Quarter: 2004Q1

REPORT INFORMATION
  Report Type: 
  Country: None (occurrence: None)
  Receive Date: 20040218
  Receipt Date: 20040205
  Transmission Date: 20041129
  Serious: Yes (Hospitalization)
  Sender: FDA-Public Use
  Company Number: 2003038198

PATIENT
  Age: 78 Year
  Sex: Female
  Weight: 65 kg

DRUGS (8)
  1. NEURONTIN [Suspect]
     Indication: NEUROPATHIC PAIN
     Dosage: 900 MG (TID)
     Dates: start: 20030418, end: 20030501
  2. GLYCERYL TRINITRATE [Concomitant]
  3. GLICLAZIDE [Concomitant]
  4. TIAPRIDE [Concomitant]
  5. ALPRAZOLAM [Concomitant]
  6. CODEINE PHOSPHATE AND ACETAMINOPHEN [Concomitant]
  7. ZOLPIDEM TARTRATE [Concomitant]
  8. CITALOBRAM HYDROBROMIDE [Concomitant]

REACTIONS (3)
  - DYSPHAGIA [None]
  - FACE OEDEMA [None]
  - GASTROINTESTINAL DISORDER [None]
